FAERS Safety Report 8129753-6 (Version None)
Quarter: 2012Q1

REPORT INFORMATION
  Report Type: 
  Country: None (occurrence: None)
  Receive Date: 20120210
  Receipt Date: 20120207
  Transmission Date: 20120608
  Serious: No
  Sender: FDA-Public Use
  Company Number: US-BAYER-2012-013674

PATIENT
  Age: 3 Year
  Sex: Female
  Weight: 16 kg

DRUGS (1)
  1. RID MOUSSE [Suspect]
     Indication: LICE INFESTATION
     Dosage: UNK
     Route: 061
     Dates: end: 20120130

REACTIONS (1)
  - NO ADVERSE EVENT [None]
